FAERS Safety Report 13078678 (Version 3)
Quarter: 2017Q2

REPORT INFORMATION
  Report Type: Spontaneous
  Country: DK (occurrence: DK)
  Receive Date: 20170102
  Receipt Date: 20170411
  Transmission Date: 20170830
  Serious: Yes (Hospitalization)
  Sender: FDA-Public Use
  Company Number: DK-TEVA-723239ACC

PATIENT
  Age: 29 Year
  Sex: Male

DRUGS (9)
  1. BLEOMYCIN ^TEVA^ [Suspect]
     Active Substance: BLEOMYCIN SULFATE
     Indication: HODGKIN^S DISEASE
     Dosage: STRENGTH: 15000 IE.
     Dates: start: 20120113, end: 20120214
  2. ADRIAMYCIN [Suspect]
     Active Substance: DOXORUBICIN HYDROCHLORIDE
     Indication: HODGKIN^S DISEASE
     Dates: start: 20120113, end: 20120612
  3. ONCOVIN [Suspect]
     Active Substance: VINCRISTINE SULFATE
     Indication: HODGKIN^S DISEASE
     Dates: start: 20120113, end: 20120612
  4. BLEOMYCIN ^BAXTER^ [Suspect]
     Active Substance: BLEOMYCIN SULFATE
     Indication: HODGKIN^S DISEASE
     Dosage: STRENGTH: 15000 IE.
     Dates: start: 20120306, end: 20120612
  5. ETOPOSID [Suspect]
     Active Substance: ETOPOSIDE
     Indication: HODGKIN^S DISEASE
     Dates: start: 20120113, end: 20120612
  6. SENDOXAN [Suspect]
     Active Substance: CYCLOPHOSPHAMIDE
     Indication: HODGKIN^S DISEASE
     Dates: start: 20120113, end: 20120612
  7. NATULAN ^SIGMA-TAU^ [Suspect]
     Active Substance: PROCARBAZINE HYDROCHLORIDE
     Indication: HODGKIN^S DISEASE
     Dosage: STRENGTH: 50 MG.
     Route: 048
     Dates: start: 20120113, end: 20120612
  8. NEULASTA [Concomitant]
     Active Substance: PEGFILGRASTIM
     Indication: HODGKIN^S DISEASE
     Dosage: STYRKE: 6 MG.
     Dates: start: 201201, end: 2012
  9. PREDNISOLON [Concomitant]
     Active Substance: PREDNISOLONE
     Indication: HODGKIN^S DISEASE
     Dates: start: 20120113, end: 20120612

REACTIONS (15)
  - Arthralgia [Not Recovered/Not Resolved]
  - Abdominal pain upper [Not Recovered/Not Resolved]
  - Diarrhoea [Not Recovered/Not Resolved]
  - Dizziness [Not Recovered/Not Resolved]
  - Nausea [Recovered/Resolved]
  - Musculoskeletal pain [Not Recovered/Not Resolved]
  - Palpitations [Not Recovered/Not Resolved]
  - Fatigue [Not Recovered/Not Resolved]
  - Tinnitus [Recovered/Resolved]
  - Dyspnoea [Not Recovered/Not Resolved]
  - Headache [Not Recovered/Not Resolved]
  - Back pain [Not Recovered/Not Resolved]
  - Chest pain [Not Recovered/Not Resolved]
  - Dyspepsia [Not Recovered/Not Resolved]
  - Paraesthesia [Not Recovered/Not Resolved]

NARRATIVE: CASE EVENT DATE: 201201
